FAERS Safety Report 9752334 (Version 1)
Quarter: 2013Q4

REPORT INFORMATION
  Report Type: Spontaneous
  Country: US (occurrence: None)
  Receive Date: 20131212
  Receipt Date: 20131212
  Transmission Date: 20140711
  Serious: Yes (Life-Threatening, Disabling)
  Sender: FDA-Public Use
  Company Number: None

PATIENT
  Age: 60 Year
  Sex: Male
  Weight: 81.65 kg

DRUGS (1)
  1. BOTOX [Suspect]
     Indication: SPASMODIC DYSPHONIA
     Dosage: INTO THE MUSCLE
     Route: 030
     Dates: start: 20131118

REACTIONS (2)
  - Aphagia [None]
  - Pharyngitis [None]
